FAERS Safety Report 4656008-4 (Version None)
Quarter: 2005Q2

REPORT INFORMATION
  Report Type: 
  Country: None (occurrence: None)
  Receive Date: 20050506
  Receipt Date: 20050506
  Transmission Date: 20051028
  Serious: Yes (Hospitalization)
  Sender: FDA-Public Use
  Company Number: None

PATIENT
  Age: 40 Year
  Sex: Male
  Weight: 167.3773 kg

DRUGS (21)
  1. BEVACIZUMAB [Suspect]
     Indication: METASTATIC GASTRIC CANCER
     Dosage: 5MG/KG DAYS 1, 15
     Dates: start: 20050127, end: 20050421
  2. DOCETAXEL [Suspect]
     Indication: METASTATIC GASTRIC CANCER
     Dosage: 35MG/M2  DAYS 1,8,15
     Dates: start: 20050127, end: 20050421
  3. ALBUTEROL [Concomitant]
  4. COMPAZINE [Concomitant]
  5. EMEND [Concomitant]
  6. IMODIUM [Concomitant]
  7. LIDOCAINE/MAALOX/DIPHENHYDRAMINE [Concomitant]
  8. LORAZEPAM [Concomitant]
  9. MAGNESIUM CITRATE [Concomitant]
  10. MS CONTIN [Concomitant]
  11. MSIR ELIXIR [Concomitant]
  12. REGLAN [Concomitant]
  13. TRAZADONE [Concomitant]
  14. DEXAMETHASONE SOLUTION [Concomitant]
  15. DURAGESIC-100 [Concomitant]
  16. FLEXERIL [Concomitant]
  17. FLONASE [Concomitant]
  18. GLYBURIDE [Concomitant]
  19. IBUPROFEN [Concomitant]
  20. LACRI-LUBE [Concomitant]
  21. PROTONIX [Concomitant]

REACTIONS (2)
  - CEREBELLAR HAEMORRHAGE [None]
  - METASTASES TO CENTRAL NERVOUS SYSTEM [None]
